FAERS Safety Report 21962089 (Version 1)
Quarter: 2023Q1

REPORT INFORMATION
  Report Type: Spontaneous
  Country: CN (occurrence: CN)
  Receive Date: 20230207
  Receipt Date: 20230207
  Transmission Date: 20230417
  Serious: Yes (Life-Threatening, Hospitalization, Other)
  Sender: FDA-Public Use
  Company Number: CN-ViiV Healthcare Limited-CN2023GSK014191

PATIENT

DRUGS (9)
  1. LAMIVUDINE [Suspect]
     Active Substance: LAMIVUDINE
     Indication: HIV infection
     Dosage: UNK
  2. TENOFOVIR DISOPROXIL FUMARATE [Suspect]
     Active Substance: TENOFOVIR DISOPROXIL FUMARATE
     Indication: HIV infection
     Dosage: UNK
  3. DOLUTEGRAVIR SODIUM\LAMIVUDINE [Suspect]
     Active Substance: DOLUTEGRAVIR SODIUM\LAMIVUDINE
     Indication: HIV infection
     Dosage: UNK
  4. ZIDOVUDINE [Suspect]
     Active Substance: ZIDOVUDINE
     Indication: HIV infection
     Dosage: UNK
  5. EFAVIRENZ [Interacting]
     Active Substance: EFAVIRENZ
     Indication: HIV infection
     Dosage: UNK
  6. LOPINAVIR\RITONAVIR [Suspect]
     Active Substance: LOPINAVIR\RITONAVIR
     Indication: HIV infection
     Dosage: UNK
  7. VORICONAZOLE [Interacting]
     Active Substance: VORICONAZOLE
     Indication: Antifungal treatment
     Dosage: 200 MG, BID
     Route: 042
  8. SULFAMETHOXAZOLE\TRIMETHOPRIM [Concomitant]
     Active Substance: SULFAMETHOXAZOLE\TRIMETHOPRIM
     Indication: Pneumocystis jirovecii pneumonia
     Dosage: 0.96 G, 1D
  9. SULFAMETHOXAZOLE\TRIMETHOPRIM [Concomitant]
     Active Substance: SULFAMETHOXAZOLE\TRIMETHOPRIM
     Indication: Prophylaxis

REACTIONS (19)
  - Penicillium infection [Recovered/Resolved]
  - Virologic failure [Recovered/Resolved]
  - Discomfort [Recovered/Resolved]
  - Abdominal lymphadenopathy [Recovered/Resolved]
  - Abdominal pain [Recovered/Resolved]
  - Diarrhoea [Recovered/Resolved]
  - Rash papular [Recovered/Resolved]
  - Skin necrosis [Recovered/Resolved]
  - Skin lesion [Recovered/Resolved]
  - Ulcer [Recovered/Resolved]
  - Gastrointestinal inflammation [Recovered/Resolved]
  - Gastrointestinal haemorrhage [Recovered/Resolved]
  - Faeces discoloured [Recovered/Resolved]
  - Myelosuppression [Recovered/Resolved]
  - Shock haemorrhagic [Recovered/Resolved]
  - Hypotension [Recovered/Resolved]
  - Liver function test abnormal [Recovered/Resolved]
  - Pathogen resistance [Recovered/Resolved]
  - Drug interaction [Unknown]

NARRATIVE: CASE EVENT DATE: 20201228
